FAERS Safety Report 9741408 (Version 3)
Quarter: 2014Q1

REPORT INFORMATION
  Report Type: Spontaneous
  Country: JP (occurrence: JP)
  Receive Date: 20131209
  Receipt Date: 20140121
  Transmission Date: 20141002
  Serious: Yes (Other)
  Sender: FDA-Public Use
  Company Number: PHHY2013JP142219

PATIENT
  Age: 47 Year
  Sex: Male

DRUGS (2)
  1. AFINITOR [Suspect]
     Indication: PANCREATIC NEUROENDOCRINE TUMOUR
     Route: 048
  2. AFINITOR [Suspect]
     Indication: GASTRINOMA

REACTIONS (7)
  - Ketosis [Unknown]
  - Impaired insulin secretion [Recovered/Resolved]
  - Blood glucose increased [Recovering/Resolving]
  - Glycosylated haemoglobin increased [Unknown]
  - Thirst [Unknown]
  - Polydipsia [Unknown]
  - Polyuria [Unknown]
